FAERS Safety Report 4375471-X (Version None)
Quarter: 2004Q2

REPORT INFORMATION
  Report Type: 
  Country: None (occurrence: None)
  Receive Date: 20040607
  Receipt Date: 20040526
  Transmission Date: 20050107
  Serious: Yes (Hospitalization)
  Sender: FDA-Public Use
  Company Number: 206584

PATIENT
  Age: 68 Year
  Sex: Female

DRUGS (10)
  1. XOLAIR [Suspect]
     Indication: ASTHMA
     Dates: start: 20040514, end: 20040514
  2. PREDNISONE TAB [Concomitant]
  3. FORADIL [Concomitant]
  4. NASONEX [Concomitant]
  5. ACCOLATE [Concomitant]
  6. FIORICET (CAFFEINE , BUTALBITAL, ACETAMINOPHEN) [Concomitant]
  7. PROTONIX [Concomitant]
  8. BENADRYL [Concomitant]
  9. EPIPEN (EPINEPHRINE) [Concomitant]
  10. ALLERGY SHOT (ALLERGENIC EXTRACTS) [Concomitant]

REACTIONS (5)
  - ASTHMA [None]
  - BLOOD CULTURE POSITIVE [None]
  - BLOOD PRESSURE INCREASED [None]
  - DIZZINESS [None]
  - STREPTOCOCCAL INFECTION [None]
